FAERS Safety Report 8084733-4 (Version None)
Quarter: 2012Q1

REPORT INFORMATION
  Report Type: 
  Country: None (occurrence: None)
  Receive Date: 20120128
  Receipt Date: 20110316
  Transmission Date: 20120608
  Serious: No
  Sender: FDA-Public Use
  Company Number: US-ABBOTT-11P-163-0712305-00

PATIENT
  Sex: Female
  Weight: 42.676 kg

DRUGS (1)
  1. HUMIRA [Suspect]
     Indication: CROHN'S DISEASE
     Dates: start: 20100301

REACTIONS (3)
  - ANXIETY [None]
  - DEVICE MALFUNCTION [None]
  - INJECTION SITE PAIN [None]
